FAERS Safety Report 10612555 (Version 1)
Quarter: 2014Q4

REPORT INFORMATION
  Report Type: Spontaneous
  Country: US (occurrence: US)
  Receive Date: 20141127
  Receipt Date: 20141127
  Transmission Date: 20150529
  Serious: No
  Sender: FDA-Public Use
  Company Number: US-BIOGENIDEC-2014BI123240

PATIENT
  Age: 37 Year
  Sex: Female

DRUGS (1)
  1. TECFIDERA [Suspect]
     Active Substance: DIMETHYL FUMARATE
     Indication: RELAPSING-REMITTING MULTIPLE SCLEROSIS
     Dates: start: 201406

REACTIONS (5)
  - Weight increased [Unknown]
  - Flushing [Not Recovered/Not Resolved]
  - Memory impairment [Not Recovered/Not Resolved]
  - Menstruation irregular [Unknown]
  - Cognitive disorder [Not Recovered/Not Resolved]
